FAERS Safety Report 16666849 (Version 1)
Quarter: 2019Q3

REPORT INFORMATION
  Report Type: Spontaneous
  Country: FR (occurrence: FR)
  Receive Date: 20190805
  Receipt Date: 20190805
  Transmission Date: 20191004
  Serious: Yes (Other)
  Sender: FDA-Public Use
  Company Number: FR-TEVA-2019-FR-1087603

PATIENT
  Age: 67 Year
  Sex: Male

DRUGS (10)
  1. RIFADINE 300 MG, G?LULE [Suspect]
     Active Substance: RIFAMPIN
     Indication: EPIDIDYMITIS
     Dosage: 300 MILLIGRAM, 0-2-0-2
     Route: 048
     Dates: start: 20190405
  2. CONTRAMAL L.P. 100 MG, COMPRIM? ? LIB?RATION PROLONG?E [Suspect]
     Active Substance: TRAMADOL HYDROCHLORIDE
     Indication: PAIN
     Dosage: 100 MILLIGRAMS, 1-0-1
     Route: 048
     Dates: start: 20190410
  3. LOVENOX [Suspect]
     Active Substance: ENOXAPARIN SODIUM
     Indication: THROMBOSIS PROPHYLAXIS
     Dosage: 4000 INTERNATIONAL UNIT, QD
     Route: 058
     Dates: start: 20190405
  4. SODIUM ALGINATE SODIUM BICARBONATE MYLAN [Suspect]
     Active Substance: SODIUM ALGINATE\SODIUM BICARBONATE
     Indication: GASTROOESOPHAGEAL REFLUX DISEASE
     Dosage: IF NEEDED (MAX4/DAY)
     Route: 048
     Dates: start: 20190406
  5. LANSOPRAZOLE MYLAN 15 MG, COMPRIM? ORODISPERSIBLE [Suspect]
     Active Substance: LANSOPRAZOLE
     Indication: PROPHYLAXIS AGAINST GASTROINTESTINAL ULCER
     Dosage: 15 MILLIGRAM, 0-1-0
     Route: 048
     Dates: start: 20190410
  6. LEVOFLOXACINE ARROW 500 MG, COMPRIM? PELLICUL? S?CABLE [Suspect]
     Active Substance: LEVOFLOXACIN
     Indication: EPIDIDYMITIS
     Dosage: 1000 MILLIGRAM, QD
     Route: 048
     Dates: start: 20190405, end: 20190503
  7. TRAMADOL HYDROCHLORIDE. [Suspect]
     Active Substance: TRAMADOL HYDROCHLORIDE
     Indication: PAIN
     Dosage: 100 MILLIGRAM, BID
     Route: 048
     Dates: start: 20190410
  8. DESLORATADINE MYLAN 5 MG, COMPRIM? PELLICUL? [Suspect]
     Active Substance: DESLORATADINE
     Indication: RHINITIS
     Dosage: 5 MILLIGRAM
     Route: 048
     Dates: start: 20190426, end: 20190510
  9. DOLIPRANE [Concomitant]
     Active Substance: ACETAMINOPHEN
     Indication: PAIN
     Dosage: 6 CAPSULES/DAY ON DEMAND
     Route: 048
  10. HAVLANE [Concomitant]
     Active Substance: LOPRAZOLAM
     Indication: SLEEP DISORDER
     Dosage: 1 MILLIGRAM, 0-0-1
     Route: 048

REACTIONS (1)
  - Rotator cuff syndrome [Recovering/Resolving]

NARRATIVE: CASE EVENT DATE: 20190503
